FAERS Safety Report 23171061 (Version 1)
Quarter: 2023Q4

REPORT INFORMATION
  Report Type: Spontaneous
  Country: GB (occurrence: None)
  Receive Date: 20231110
  Receipt Date: 20231110
  Transmission Date: 20240110
  Serious: Yes (Other)
  Sender: FDA-Public Use
  Company Number: 2023A254533

PATIENT
  Age: 73 Year
  Sex: Female
  Weight: 91 kg

DRUGS (21)
  1. DAPAGLIFLOZIN [Suspect]
     Active Substance: DAPAGLIFLOZIN
     Dosage: 10
     Dates: start: 20230804
  2. AMLODIPINE [Concomitant]
     Active Substance: AMLODIPINE BESYLATE
     Indication: Hypertension
     Dosage: 1, TAKE ONE DAILY TO LOWER BLOOD PRESSURE AND/OR P...
     Dates: start: 20230705
  3. AMOXICILLIN [Concomitant]
     Active Substance: AMOXICILLIN
     Dosage: 1,TAKE ONE 3 TIMES/DAY
     Dates: start: 20230824, end: 20230831
  4. ATORVASTATIN [Concomitant]
     Active Substance: ATORVASTATIN
     Dosage: 1,TAKE ONE DAILY WITH BREAKFAST TO LOWER CHOLESTEROL
     Dates: start: 20230321
  5. CEPHALEXIN [Concomitant]
     Active Substance: CEPHALEXIN
     Dates: start: 20231016
  6. MELATONIN [Concomitant]
     Active Substance: MELATONIN
     Dosage: TAKE ONE 1-2 HRS BEFORE BED
     Dates: start: 20230228
  7. CITALOPRAM [Concomitant]
     Active Substance: CITALOPRAM HYDROBROMIDE
     Indication: Depressed mood
     Dosage: 2, TAKE TWO DAILY TO PREVENT LOW MOOD WHEN NEEDED
     Dates: start: 20221101
  8. CLONAZEPAM [Concomitant]
     Active Substance: CLONAZEPAM
     Dosage: 1,EACH NIGHT
     Dates: start: 20230421
  9. BENSERAZIDE HYDROCHLORIDE\LEVODOPA [Concomitant]
     Active Substance: BENSERAZIDE HYDROCHLORIDE\LEVODOPA
     Dosage: 2, TAKE TWO 3 TIMES DAILY AT 9AM, 1PM AND 5PM AS I...
     Dates: start: 20220509
  10. CLOBETASOL [Concomitant]
     Active Substance: CLOBETASOL
     Dates: start: 20231016
  11. FERROUS FUMARATE [Concomitant]
     Active Substance: FERROUS FUMARATE
     Dosage: 1, TAKE ONE 3 TIMES/DAY TO PREVENT IRON DEFICIENCY...
     Dates: start: 20201117, end: 20230824
  12. FERROUS GLUCONATE [Concomitant]
     Active Substance: FERROUS GLUCONATE
     Dosage: 1
     Dates: start: 20230628
  13. BECLOMETHASONE\FORMOTEROL [Concomitant]
     Active Substance: BECLOMETHASONE\FORMOTEROL
     Dosage: 2, INHALE ONE OR TWO PUFFS TWICE A DAY TO CONTROL ...
     Route: 055
     Dates: start: 20200526
  14. LANSOPRAZOLE [Concomitant]
     Active Substance: LANSOPRAZOLE
     Dosage: 1
     Dates: start: 20230612
  15. LOSARTAN [Concomitant]
     Active Substance: LOSARTAN
     Indication: Hypertension
     Dosage: 1
     Dates: start: 20230130
  16. MEPTAZINOL HYDROCHLORIDE [Concomitant]
     Active Substance: MEPTAZINOL HYDROCHLORIDE
     Dosage: TAKE ONE EVERY 4 HOURS UP TO SIX DAILY
     Dates: start: 20230706
  17. METFORMIN [Concomitant]
     Active Substance: METFORMIN HYDROCHLORIDE
     Dosage: 1,WITH MAIN MEAL AND GRADUALLY ADD...
     Dates: start: 20230628
  18. MIRTAZAPINE [Concomitant]
     Active Substance: MIRTAZAPINE
     Dosage: 1,AT NIGHT
     Dates: start: 20230628
  19. AMDINOCILLIN PIVOXIL [Concomitant]
     Active Substance: AMDINOCILLIN PIVOXIL
     Indication: Urinary tract infection
     Dosage: UTI WOMEN - TAKE TWO IMMEDIATELY, THEN ONE TAB...
     Dates: start: 20231010, end: 20231013
  20. ALBUTEROL [Concomitant]
     Active Substance: ALBUTEROL
     Dosage: 2, INHALE 2 DOSES AS NEEDED OR AS ADVISED IN EMERG...
     Route: 055
     Dates: start: 20230228
  21. TRIMETHOPRIM [Concomitant]
     Active Substance: TRIMETHOPRIM
     Dosage: 1,TAKE ONE EVERY ALTERNATE DAY FOR 6 MONTHS THEN ...
     Dates: start: 20230210

REACTIONS (1)
  - Candida infection [Recovered/Resolved]

NARRATIVE: CASE EVENT DATE: 20231106
